FAERS Safety Report 6607113-4 (Version None)
Quarter: 2010Q1

REPORT INFORMATION
  Report Type: 
  Country: None (occurrence: None)
  Receive Date: 20100219
  Receipt Date: 20100208
  Transmission Date: 20100710
  Serious: Yes (Other)
  Sender: FDA-Public Use
  Company Number: US-1180721

PATIENT
  Sex: Female

DRUGS (3)
  1. VIGAMOX [Suspect]
     Indication: CONJUNCTIVITIS INFECTIVE
     Dosage: (ONE GTT TID OS OPHTHALMIC)
     Route: 047
     Dates: start: 20100122, end: 20100125
  2. SIMVASTATIN [Concomitant]
  3. MOBIC [Concomitant]

REACTIONS (11)
  - ADENOVIRAL CONJUNCTIVITIS [None]
  - APPLICATION SITE IRRITATION [None]
  - BLISTER [None]
  - CONDITION AGGRAVATED [None]
  - CONJUNCTIVAL SCAR [None]
  - EYE HAEMORRHAGE [None]
  - EYELID PTOSIS [None]
  - HYPOAESTHESIA FACIAL [None]
  - MUCOUS MEMBRANE DISORDER [None]
  - OCULAR HYPERAEMIA [None]
  - PHOTOPHOBIA [None]
